APPROVED DRUG PRODUCT: LIQUID E-Z-PAQUE
Active Ingredient: BARIUM SULFATE
Strength: 60%
Dosage Form/Route: SUSPENSION;ORAL
Application: N208143 | Product #003
Applicant: BRACCO DIAGNOSTICS INC
Approved: Mar 1, 2017 | RLD: Yes | RS: Yes | Type: RX